FAERS Safety Report 8845158 (Version 1)
Quarter: 2012Q4

REPORT INFORMATION
  Report Type: Spontaneous
  Country: US (occurrence: None)
  Receive Date: 20121016
  Receipt Date: 20121016
  Transmission Date: 20130627
  Serious: Yes (Hospitalization)
  Sender: FDA-Public Use
  Company Number: None

PATIENT
  Age: 86 Year
  Sex: Female
  Weight: 44.3 kg

DRUGS (12)
  1. PLAVIX [Suspect]
     Indication: CORONARY ARTERY DISEASE
     Route: 048
  2. ASA [Suspect]
     Indication: CORONARY ARTERY DISEASE
     Route: 048
  3. ALPHAGAN [Concomitant]
  4. AMLODIPINE [Concomitant]
  5. ATORVASTIN [Concomitant]
  6. CRESTOR [Concomitant]
  7. LOMIGAN [Concomitant]
  8. TYLENOL [Concomitant]
  9. PROMETHAZINE [Concomitant]
  10. SERTRALINE [Concomitant]
  11. VIT D [Concomitant]
  12. DOCUSATE [Concomitant]

REACTIONS (4)
  - Anaemia [None]
  - Upper gastrointestinal haemorrhage [None]
  - Gastric ulcer [None]
  - Helicobacter test positive [None]
